FAERS Safety Report 5328424-9 (Version None)
Quarter: 2007Q2

REPORT INFORMATION
  Report Type: 
  Country: None (occurrence: None)
  Receive Date: 20070517
  Receipt Date: 20070517
  Transmission Date: 20071010
  Serious: Yes (Hospitalization)
  Sender: FDA-Public Use
  Company Number: None

PATIENT
  Sex: Male
  Weight: 72.6 kg

DRUGS (12)
  1. OMNISCAN [Suspect]
     Indication: SCAN WITH CONTRAST
     Dosage: 25ML ONCE INTRA-ARTER
     Route: 013
     Dates: start: 20070510, end: 20070510
  2. MEXILETINE HYDROCHLORIDE [Concomitant]
  3. METOPROLOL SUCCINATE [Concomitant]
  4. IRON POLYSACCHARIDE COMPLEX CAP [Concomitant]
  5. GABAPENTIN [Concomitant]
  6. FUROSEMIDE [Concomitant]
  7. DORZOLAMIDE/TIMOLOL [Concomitant]
  8. CALCIUM ACETATE [Concomitant]
  9. BRIMONIDINE TARTRATE [Concomitant]
  10. ATROPINE [Concomitant]
  11. OXYCODONE AND ACETAMINOPHEN [Concomitant]
  12. SODIUM CHLORIDE [Concomitant]

REACTIONS (3)
  - BLOOD CREATININE INCREASED [None]
  - POST PROCEDURAL COMPLICATION [None]
  - RENAL INJURY [None]
